FAERS Safety Report 21828747 (Version 1)
Quarter: 2023Q1

REPORT INFORMATION
  Report Type: Spontaneous
  Country: DK (occurrence: DK)
  Receive Date: 20230106
  Receipt Date: 20230106
  Transmission Date: 20230417
  Serious: Yes (Death)
  Sender: FDA-Public Use
  Company Number: None

PATIENT
  Age: 30 Year
  Sex: Female

DRUGS (17)
  1. MORPHINE SULFATE [Suspect]
     Active Substance: MORPHINE SULFATE
     Indication: Pain
     Dosage: DOSAGE: MORPHINE REDUCED WITH 140 MG ON 20JUL2021. 09SEP2021: 90 MG 3 TIMES/DAY. STRENGTH: 30 MG
  2. MORPHINE HYDROCHLORIDE [Suspect]
     Active Substance: MORPHINE HYDROCHLORIDE
     Indication: Pain
     Dosage: DOSAGE: 30MG MAX 4 TIMES A DAY FROM 23SEP2021.   STRENGTH: 30 MG
  3. MORPHINE HYDROCHLORIDE [Suspect]
     Active Substance: MORPHINE HYDROCHLORIDE
     Indication: Pain
     Dosage: DOSAGE: MORPHINE REDUCED WITH 140MG ON 20JUL2021. 09SEP2021: 10MG MAX 3 TIMES A DAY. STRENGTH: 10 MG
  4. ASACOL [Concomitant]
     Active Substance: MESALAMINE
     Indication: Colitis ulcerative
     Dosage: PAUSED ON 05OCT2021-08OCT2021. PAUSED AGAIN ON 14OCT2021.
     Dates: start: 20210416
  5. COLCHICINE [Concomitant]
     Active Substance: COLCHICINE
     Indication: Gouty arthritis
     Dates: start: 202007
  6. METHOTREXATE [Concomitant]
     Active Substance: METHOTREXATE
     Indication: Juvenile idiopathic arthritis
     Dates: start: 20210521, end: 20210824
  7. DICLOFENAC [Concomitant]
     Active Substance: DICLOFENAC
     Indication: Pain
     Dates: start: 20210204
  8. HYRIMOZ [Concomitant]
     Active Substance: ADALIMUMAB-ADAZ
     Indication: Juvenile idiopathic arthritis
     Dates: start: 20190604
  9. ZOLPIDEM [Concomitant]
     Active Substance: ZOLPIDEM TARTRATE
     Indication: Herpes virus infection
     Dates: start: 20200205
  10. ALLOPURINOL [Concomitant]
     Active Substance: ALLOPURINOL
     Indication: Gouty arthritis
     Dates: start: 202004
  11. OXAZEPAM [Concomitant]
     Active Substance: OXAZEPAM
     Indication: Sedative therapy
     Dates: start: 20200910
  12. PROLIA [Concomitant]
     Active Substance: DENOSUMAB
     Indication: Osteopenia
     Dates: start: 20201023
  13. COLESEVELAM HYDROCHLORIDE [Concomitant]
     Active Substance: COLESEVELAM HYDROCHLORIDE
     Indication: Hypercholesterolaemia
     Dates: start: 20210907
  14. ACETAMINOPHEN [Concomitant]
     Active Substance: ACETAMINOPHEN
     Indication: Pain
     Dates: start: 20200730
  15. GABAPENTIN [Concomitant]
     Active Substance: GABAPENTIN
     Indication: Pain
     Dates: start: 20180201
  16. PREDNISOLONE [Concomitant]
     Active Substance: PREDNISOLONE
     Indication: Juvenile idiopathic arthritis
     Dates: start: 20180628
  17. MIRTAZAPINE [Concomitant]
     Active Substance: MIRTAZAPINE
     Indication: Depression
     Dates: start: 20210621

REACTIONS (2)
  - Toxicity to various agents [Fatal]
  - Drug withdrawal syndrome [Fatal]

NARRATIVE: CASE EVENT DATE: 20210701
